FAERS Safety Report 7060163-9 (Version None)
Quarter: 2010Q4

REPORT INFORMATION
  Report Type: 
  Country: None (occurrence: None)
  Receive Date: 20101025
  Receipt Date: 20101018
  Transmission Date: 20110411
  Serious: Yes (Hospitalization)
  Sender: FDA-Public Use
  Company Number: US-GILEAD-2010-0032712

PATIENT
  Age: 74 Year
  Sex: Female
  Weight: 74.002 kg

DRUGS (31)
  1. LETAIRIS [Suspect]
     Indication: PULMONARY ARTERIAL HYPERTENSION
  2. ACTONEL [Concomitant]
  3. ADVAIR DISKUS 100/50 [Concomitant]
  4. PULMICORT [Concomitant]
  5. KLOR-CON [Concomitant]
  6. HYDROCODONE [Concomitant]
  7. CARTIA XT [Concomitant]
  8. ATROVENT [Concomitant]
  9. GREEN TEA [Concomitant]
  10. AF-TUSSIN [Concomitant]
  11. VITAMIN D [Concomitant]
  12. ACIPHEX [Concomitant]
  13. PROMETHAZINE [Concomitant]
  14. AUGMENTIN '125' [Concomitant]
  15. PHENERGAN W/ CODEINE [Concomitant]
  16. CYMBALTA [Concomitant]
  17. LORAZEPAM [Concomitant]
  18. FUROSEMIDE [Concomitant]
  19. CREON [Concomitant]
  20. GAS-X [Concomitant]
  21. ALBUTEROL [Concomitant]
  22. SYNTHROID [Concomitant]
  23. COUMADIN [Concomitant]
  24. DULCOLAX [Concomitant]
  25. LIPITOR [Concomitant]
  26. ZOVIRAX [Concomitant]
  27. FERROUS SULFATE [Concomitant]
  28. NITROGLYCERIN [Concomitant]
  29. BENAZEPRIL HYDROCHLORIDE [Concomitant]
  30. PRIMIDONE [Concomitant]
  31. LACTULOSE [Concomitant]

REACTIONS (1)
  - BRONCHITIS [None]
